FAERS Safety Report 16951786 (Version 4)
Quarter: 2020Q4

REPORT INFORMATION
  Report Type: Report from Study
  Country: US (occurrence: US)
  Receive Date: 20191023
  Receipt Date: 20201107
  Transmission Date: 20210113
  Serious: Yes (Hospitalization)
  Sender: FDA-Public Use
  Company Number: US-SHIRE-US201935440

PATIENT
  Age: 74 Year
  Sex: Female

DRUGS (48)
  1. GATTEX [Suspect]
     Active Substance: TEDUGLUTIDE\WATER
     Dosage: 0.2380 UNIT UNKNOWN, 1X/DAY:QD
     Route: 058
     Dates: start: 20190617
  2. GATTEX [Suspect]
     Active Substance: TEDUGLUTIDE\WATER
     Dosage: 2.38 MILLIGRAM, 1X/DAY:QD
     Route: 058
     Dates: start: 20200418
  3. GATTEX [Suspect]
     Active Substance: TEDUGLUTIDE\WATER
     Dosage: 2.38 MILLIGRAM, 1X/DAY:QD
     Route: 058
     Dates: start: 20200516
  4. GATTEX [Suspect]
     Active Substance: TEDUGLUTIDE\WATER
     Dosage: 2.38 MILLIGRAM, QD
     Route: 030
     Dates: start: 20190613
  5. GATTEX [Suspect]
     Active Substance: TEDUGLUTIDE\WATER
     Dosage: 2.38 MILLIGRAM, 1X/DAY:QD
     Route: 058
     Dates: start: 20190912
  6. GATTEX [Suspect]
     Active Substance: TEDUGLUTIDE\WATER
     Dosage: 0.2380 UNIT UNKNOWN, 1X/DAY:QD
     Route: 058
     Dates: start: 20190617
  7. GATTEX [Suspect]
     Active Substance: TEDUGLUTIDE\WATER
     Dosage: 2.38 MILLIGRAM, 1X/DAY:QD
     Route: 058
     Dates: start: 20200320
  8. GATTEX [Suspect]
     Active Substance: TEDUGLUTIDE\WATER
     Dosage: 2.38 MILLIGRAM, 1X/DAY:QD
     Route: 058
     Dates: start: 20200516
  9. GATTEX [Suspect]
     Active Substance: TEDUGLUTIDE\WATER
     Indication: SHORT-BOWEL SYNDROME
     Dosage: 2.38 MILLIGRAM, 1X/DAY:QD
     Route: 058
     Dates: start: 20190612
  10. GATTEX [Suspect]
     Active Substance: TEDUGLUTIDE\WATER
     Indication: SHORT-BOWEL SYNDROME
     Dosage: 2.38 MILLIGRAM, 1X/DAY:QD
     Route: 058
     Dates: start: 20190612
  11. GATTEX [Suspect]
     Active Substance: TEDUGLUTIDE\WATER
     Indication: SHORT-BOWEL SYNDROME
     Dosage: 2.38 MILLIGRAM, 1X/DAY:QD
     Route: 058
     Dates: start: 20190612
  12. GATTEX [Suspect]
     Active Substance: TEDUGLUTIDE\WATER
     Dosage: 2.38 MILLIGRAM, 1X/DAY:QD
     Route: 058
     Dates: start: 20191017
  13. GATTEX [Suspect]
     Active Substance: TEDUGLUTIDE\WATER
     Dosage: 2.38 MILLIGRAM, 1X/DAY:QD
     Route: 058
     Dates: start: 20200418
  14. GATTEX [Suspect]
     Active Substance: TEDUGLUTIDE\WATER
     Dosage: 2.38 MILLIGRAM, 1X/DAY:QD
     Route: 058
     Dates: start: 20200516
  15. GATTEX [Suspect]
     Active Substance: TEDUGLUTIDE\WATER
     Dosage: 2.38 MILLIGRAM, 1X/DAY:QD
     Route: 058
     Dates: start: 20200617
  16. GATTEX [Suspect]
     Active Substance: TEDUGLUTIDE\WATER
     Dosage: 2.38 MILLIGRAM, 1X/DAY:QD
     Route: 058
     Dates: start: 20200617
  17. GATTEX [Suspect]
     Active Substance: TEDUGLUTIDE\WATER
     Dosage: 2.38 MILLIGRAM, 1X/DAY:QD
     Route: 058
     Dates: start: 20200720
  18. GATTEX [Suspect]
     Active Substance: TEDUGLUTIDE\WATER
     Dosage: 2.38 MILLIGRAM, 1X/DAY:QD
     Route: 058
     Dates: start: 20200720
  19. GATTEX [Suspect]
     Active Substance: TEDUGLUTIDE\WATER
     Dosage: 0.238 UNK
     Route: 058
     Dates: start: 20190717
  20. GATTEX [Suspect]
     Active Substance: TEDUGLUTIDE\WATER
     Dosage: 2.38 MILLIGRAM, 1X/DAY:QD
     Route: 058
     Dates: start: 20190912
  21. GATTEX [Suspect]
     Active Substance: TEDUGLUTIDE\WATER
     Dosage: 2.38 MILLIGRAM, 1X/DAY:QD
     Route: 058
     Dates: start: 20200320
  22. GATTEX [Suspect]
     Active Substance: TEDUGLUTIDE\WATER
     Dosage: 2.38 MILLIGRAM, 1X/DAY:QD
     Route: 058
     Dates: start: 20200617
  23. GATTEX [Suspect]
     Active Substance: TEDUGLUTIDE\WATER
     Dosage: 2.38 MILLIGRAM, 1X/DAY:QD
     Route: 058
     Dates: start: 20200617
  24. GATTEX [Suspect]
     Active Substance: TEDUGLUTIDE\WATER
     Dosage: 2.38 MILLIGRAM, 1X/DAY:QD
     Route: 058
     Dates: start: 20190912
  25. GATTEX [Suspect]
     Active Substance: TEDUGLUTIDE\WATER
     Dosage: 2.38 MILLIGRAM, 1X/DAY:QD
     Route: 058
     Dates: start: 20191017
  26. GATTEX [Suspect]
     Active Substance: TEDUGLUTIDE\WATER
     Dosage: 2.38 MILLIGRAM, 1X/DAY:QD
     Route: 058
     Dates: start: 20200320
  27. GATTEX [Suspect]
     Active Substance: TEDUGLUTIDE\WATER
     Dosage: 2.38 MILLIGRAM, 1X/DAY:QD
     Route: 058
     Dates: start: 20200516
  28. GATTEX [Suspect]
     Active Substance: TEDUGLUTIDE\WATER
     Dosage: 2.38 MILLIGRAM, 1X/DAY:QD
     Route: 058
     Dates: start: 20200617
  29. GATTEX [Suspect]
     Active Substance: TEDUGLUTIDE\WATER
     Dosage: 2.38 MILLIGRAM, 1X/DAY:QD
     Route: 058
     Dates: start: 20200617
  30. GATTEX [Suspect]
     Active Substance: TEDUGLUTIDE\WATER
     Dosage: 2.38 MILLIGRAM, QD
     Route: 030
     Dates: start: 20190613
  31. GATTEX [Suspect]
     Active Substance: TEDUGLUTIDE\WATER
     Dosage: 0.238 UNK
     Route: 058
     Dates: start: 20190717
  32. GATTEX [Suspect]
     Active Substance: TEDUGLUTIDE\WATER
     Dosage: 0.238 UNK
     Route: 058
     Dates: start: 20190717
  33. GATTEX [Suspect]
     Active Substance: TEDUGLUTIDE\WATER
     Indication: SHORT-BOWEL SYNDROME
     Dosage: 2.38 MILLIGRAM, 1X/DAY:QD
     Route: 058
     Dates: start: 20190612
  34. GATTEX [Suspect]
     Active Substance: TEDUGLUTIDE\WATER
     Dosage: 0.2380 UNIT UNKNOWN, 1X/DAY:QD
     Route: 058
     Dates: start: 20190617
  35. GATTEX [Suspect]
     Active Substance: TEDUGLUTIDE\WATER
     Dosage: 2.38 MILLIGRAM, 1X/DAY:QD
     Route: 058
     Dates: start: 20200418
  36. GATTEX [Suspect]
     Active Substance: TEDUGLUTIDE\WATER
     Dosage: 2.38 MILLIGRAM, 1X/DAY:QD
     Route: 058
     Dates: start: 20200617
  37. GATTEX [Suspect]
     Active Substance: TEDUGLUTIDE\WATER
     Dosage: 2.38 MILLIGRAM, 1X/DAY:QD
     Route: 058
     Dates: start: 20200720
  38. GATTEX [Suspect]
     Active Substance: TEDUGLUTIDE\WATER
     Dosage: 2.38 MILLIGRAM, 1X/DAY:QD
     Route: 058
     Dates: start: 20200720
  39. GATTEX [Suspect]
     Active Substance: TEDUGLUTIDE\WATER
     Dosage: 2.38 MILLIGRAM, QD
     Route: 030
     Dates: start: 20190613
  40. GATTEX [Suspect]
     Active Substance: TEDUGLUTIDE\WATER
     Dosage: 2.38 MILLIGRAM, 1X/DAY:QD
     Route: 058
     Dates: start: 20190912
  41. GATTEX [Suspect]
     Active Substance: TEDUGLUTIDE\WATER
     Dosage: 0.2380 UNIT UNKNOWN, 1X/DAY:QD
     Route: 058
     Dates: start: 20190617
  42. GATTEX [Suspect]
     Active Substance: TEDUGLUTIDE\WATER
     Dosage: 2.38 MILLIGRAM, 1X/DAY:QD
     Route: 058
     Dates: start: 20191017
  43. GATTEX [Suspect]
     Active Substance: TEDUGLUTIDE\WATER
     Dosage: 2.38 MILLIGRAM, 1X/DAY:QD
     Route: 058
     Dates: start: 20191017
  44. GATTEX [Suspect]
     Active Substance: TEDUGLUTIDE\WATER
     Dosage: 2.38 MILLIGRAM, QD
     Route: 030
     Dates: start: 20190613
  45. GATTEX [Suspect]
     Active Substance: TEDUGLUTIDE\WATER
     Dosage: 2.38 MILLIGRAM, 1X/DAY:QD
     Route: 058
     Dates: start: 20200320
  46. GATTEX [Suspect]
     Active Substance: TEDUGLUTIDE\WATER
     Dosage: 2.38 MILLIGRAM, 1X/DAY:QD
     Route: 058
     Dates: start: 20200418
  47. GATTEX [Suspect]
     Active Substance: TEDUGLUTIDE\WATER
     Dosage: 2.38 MILLIGRAM, 1X/DAY:QD
     Route: 058
     Dates: start: 20200617
  48. GATTEX [Suspect]
     Active Substance: TEDUGLUTIDE\WATER
     Dosage: 0.238 UNK
     Route: 058
     Dates: start: 20190717

REACTIONS (13)
  - Drug level decreased [Recovered/Resolved]
  - Upper limb fracture [Unknown]
  - Rib fracture [Unknown]
  - Diarrhoea [Not Recovered/Not Resolved]
  - Abdominal discomfort [Unknown]
  - Incorrect dose administered [Unknown]
  - Product packaging quantity issue [Unknown]
  - Constipation [Unknown]
  - Product use issue [Unknown]
  - Product dose omission issue [Unknown]
  - Abdominal pain upper [Not Recovered/Not Resolved]
  - Weight decreased [Not Recovered/Not Resolved]
  - Needle issue [Unknown]

NARRATIVE: CASE EVENT DATE: 20200401
